FAERS Safety Report 11293473 (Version 2)
Quarter: 2015Q4

REPORT INFORMATION
  Report Type: Report from Study
  Country: NL (occurrence: NL)
  Receive Date: 20150722
  Receipt Date: 20151001
  Transmission Date: 20160304
  Serious: Yes (Other)
  Sender: FDA-Public Use
  Company Number: NL-BAXALTA-2015BLT000436

PATIENT
  Age: 17 Year
  Sex: Male

DRUGS (3)
  1. KIOVIG 100 MG/ML [Suspect]
     Active Substance: HUMAN IMMUNOGLOBULIN G
     Indication: BRUTON^S AGAMMAGLOBULINAEMIA
     Dosage: UNK
     Route: 065
  2. KIOVIG 100 MG/ML [Suspect]
     Active Substance: HUMAN IMMUNOGLOBULIN G
     Dosage: 1 X PER 3 WEEKS
     Route: 042
     Dates: start: 20150617
  3. KIOVIG 100 MG/ML [Suspect]
     Active Substance: HUMAN IMMUNOGLOBULIN G
     Dosage: 1 X PER 3 WEEKS
     Route: 042
     Dates: start: 20150617

REACTIONS (2)
  - Eye infection [Not Recovered/Not Resolved]
  - Eye inflammation [Not Recovered/Not Resolved]

NARRATIVE: CASE EVENT DATE: 20150516
